FAERS Safety Report 18152881 (Version 2)
Quarter: 2020Q4

REPORT INFORMATION
  Report Type: Spontaneous
  Country: US (occurrence: US)
  Receive Date: 20200814
  Receipt Date: 20201022
  Transmission Date: 20210113
  Serious: Yes (Death, Other)
  Sender: FDA-Public Use
  Company Number: US-PURDUE-USA-2020-0160805

PATIENT
  Age: 51 Year
  Sex: Male

DRUGS (4)
  1. TRAMADOL. [Suspect]
     Active Substance: TRAMADOL
     Indication: PRODUCT USED FOR UNKNOWN INDICATION
     Dosage: UNK
     Route: 048
     Dates: start: 20140203
  2. OXYCODONE HYDROCHLORIDE (SIMILAR TO NDA 22-272) [Suspect]
     Active Substance: OXYCODONE HYDROCHLORIDE
     Indication: PRODUCT USED FOR UNKNOWN INDICATION
     Dosage: UNK
     Route: 048
  3. PERCOCET                           /00446701/ [Suspect]
     Active Substance: ACETAMINOPHEN\OXYCODONE HYDROCHLORIDE\OXYCODONE TEREPHTHALATE
     Indication: PRODUCT USED FOR UNKNOWN INDICATION
     Dosage: UNK
     Route: 048
     Dates: start: 20140203
  4. OXYCODONE/ ACETAMINOPHEN TABLETS [Suspect]
     Active Substance: ACETAMINOPHEN\OXYCODONE HYDROCHLORIDE
     Indication: PRODUCT USED FOR UNKNOWN INDICATION
     Dosage: UNK
     Route: 048
     Dates: start: 20140203

REACTIONS (25)
  - Surgery [Unknown]
  - Pain [Unknown]
  - Fatigue [Unknown]
  - Constipation [Unknown]
  - Physical deconditioning [Unknown]
  - Drug dependence [Unknown]
  - Erectile dysfunction [Unknown]
  - Chronic obstructive pulmonary disease [Unknown]
  - Coronary artery disease [Fatal]
  - Impaired self-care [Unknown]
  - Cardiac arrest [Fatal]
  - Cardiac failure congestive [Unknown]
  - Muscle tightness [Unknown]
  - Myocardial infarction [Fatal]
  - Cough [Unknown]
  - Glucose tolerance impaired [Unknown]
  - Chills [Unknown]
  - Unevaluable event [Unknown]
  - Dyspnoea [Unknown]
  - Hyperhidrosis [Unknown]
  - Insomnia [Unknown]
  - Nerve injury [Unknown]
  - Sleep apnoea syndrome [Unknown]
  - Obesity [Unknown]
  - Emotional distress [Unknown]

NARRATIVE: CASE EVENT DATE: 20141104
